FAERS Safety Report 23607568 (Version 1)
Quarter: 2024Q1

REPORT INFORMATION
  Report Type: Spontaneous
  Country: PL (occurrence: PL)
  Receive Date: 20240307
  Receipt Date: 20240307
  Transmission Date: 20240410
  Serious: Yes (Hospitalization)
  Sender: FDA-Public Use
  Company Number: None

PATIENT
  Age: 14 Year
  Sex: Female
  Weight: 49 kg

DRUGS (4)
  1. IBUPROFEN [Suspect]
     Active Substance: IBUPROFEN
     Indication: Product used for unknown indication
     Dosage: TIME INTERVAL: TOTAL: THE PATIENT TOOK 6 TABLETS
     Route: 048
     Dates: start: 20231115, end: 20231115
  2. ASPIRIN [Suspect]
     Active Substance: ASPIRIN
     Indication: Product used for unknown indication
     Dosage: TIME INTERVAL: TOTAL: THE PATIENT TOOK 19 TABLETS
     Route: 048
     Dates: start: 20231115, end: 20231115
  3. INDOMETHACIN [Suspect]
     Active Substance: INDOMETHACIN
     Indication: Product used for unknown indication
     Dosage: TIME INTERVAL: TOTAL: THE PATIENT TOOK 6 TABLETS
     Route: 048
     Dates: start: 20231115, end: 20231115
  4. ASPIRIN [Suspect]
     Active Substance: ASPIRIN
     Indication: Product used for unknown indication
     Dosage: TIME INTERVAL: TOTAL: THE PATIENT TOOK 15 TABLETS
     Route: 048
     Dates: start: 20231115, end: 20231115

REACTIONS (8)
  - Somnolence [Recovered/Resolved]
  - PCO2 decreased [Recovered/Resolved]
  - Vomiting [Recovered/Resolved]
  - Chest discomfort [Recovered/Resolved]
  - Toxicity to various agents [Recovered/Resolved]
  - Poisoning deliberate [Recovered/Resolved]
  - Analgesic drug level increased [Recovered/Resolved]
  - Blood pH increased [Recovered/Resolved]

NARRATIVE: CASE EVENT DATE: 20231115
